FAERS Safety Report 9800602 (Version 2)
Quarter: 2014Q1

REPORT INFORMATION
  Report Type: Spontaneous
  Country: US (occurrence: US)
  Receive Date: 20140107
  Receipt Date: 20140211
  Transmission Date: 20141002
  Serious: No
  Sender: FDA-Public Use
  Company Number: US-BIOGENIDEC-2014BI000586

PATIENT
  Age: 16 Year
  Sex: Male

DRUGS (1)
  1. AVONEX [Suspect]
     Indication: MULTIPLE SCLEROSIS
     Route: 030
     Dates: start: 20120817

REACTIONS (3)
  - Headache [Recovered/Resolved]
  - Insomnia [Recovered/Resolved with Sequelae]
  - Pyrexia [Recovered/Resolved]
